FAERS Safety Report 9059994 (Version 2)
Quarter: 2013Q1

REPORT INFORMATION
  Report Type: Report from Study
  Country: US (occurrence: US)
  Receive Date: 20130212
  Receipt Date: 20130313
  Transmission Date: 20140127
  Serious: No
  Sender: FDA-Public Use
  Company Number: US-VERTEX PHARMACEUTICALS INC.-2013-001878

PATIENT
  Sex: Female

DRUGS (9)
  1. VX-950 (TELAPREVIR) [Suspect]
     Indication: HEPATITIS C
     Dosage: 750 MG, TID
     Route: 048
  2. RIBAPAK [Suspect]
     Indication: HEPATITIS C
     Dosage: 1000, UNK, QD
  3. PEGASYS [Suspect]
     Indication: HEPATITIS C
  4. VITAMIN E [Concomitant]
     Dosage: UNK
  5. FISH OIL [Concomitant]
  6. MULTIVITAMIN AND MINERAL [Concomitant]
  7. TYLENOL [Concomitant]
     Dosage: 650 MG, TID
     Route: 048
  8. VITAMIN B COMPLEX [Concomitant]
     Dosage: UNK
  9. ADVIL                              /00044201/ [Concomitant]
     Dosage: 200 MG, UNK

REACTIONS (6)
  - Influenza like illness [Unknown]
  - Headache [Unknown]
  - Pyrexia [Unknown]
  - Chills [Unknown]
  - Fatigue [Unknown]
  - Nausea [Unknown]
